FAERS Safety Report 25215155 (Version 1)
Quarter: 2025Q2

REPORT INFORMATION
  Report Type: Spontaneous
  Country: JP (occurrence: JP)
  Receive Date: 20250418
  Receipt Date: 20250418
  Transmission Date: 20250716
  Serious: Yes (Hospitalization, Other)
  Sender: MERCK SHARP & DOHME LLC
  Company Number: JP-MSD-2411JPN000561J

PATIENT
  Age: 47 Year
  Sex: Male

DRUGS (1)
  1. STROMECTOL [Suspect]
     Active Substance: IVERMECTIN
     Indication: Nasopharyngitis
     Dosage: DOSE DESCRIPTION : 10 DOSAGE FORM, BID?DAILY DOSE : 20 DOSAGE FORM
     Route: 048

REACTIONS (4)
  - Toxicity to various agents [Unknown]
  - Altered state of consciousness [Recovering/Resolving]
  - Overdose [Unknown]
  - Intentional product misuse [Unknown]
